FAERS Safety Report 6580199-1 (Version None)
Quarter: 2010Q1

REPORT INFORMATION
  Report Type: 
  Country: None (occurrence: None)
  Receive Date: 20100203
  Receipt Date: 20100121
  Transmission Date: 20100710
  Serious: Yes (Hospitalization, Other)
  Sender: FDA-Public Use
  Company Number: 100122-0000089

PATIENT
  Age: 73 Year

DRUGS (4)
  1. ELSPAR [Suspect]
     Indication: ACUTE LYMPHOCYTIC LEUKAEMIA
  2. PREDNISOLONE [Suspect]
     Indication: CHEMOTHERAPY
  3. VINCRISTINE [Suspect]
     Indication: CHEMOTHERAPY
  4. DAUNORUBICIN HCL [Suspect]
     Indication: CHEMOTHERAPY

REACTIONS (6)
  - BLINDNESS [None]
  - BRAIN OEDEMA [None]
  - CEREBRAL INFARCTION [None]
  - PNEUMONIA [None]
  - RESPIRATORY FAILURE [None]
  - SUPERIOR SAGITTAL SINUS THROMBOSIS [None]
